FAERS Safety Report 5841008-9 (Version None)
Quarter: 2008Q3

REPORT INFORMATION
  Report Type: 
  Country: None (occurrence: None)
  Receive Date: 20080811
  Receipt Date: 20080711
  Transmission Date: 20090109
  Serious: Yes (Other)
  Sender: FDA-Public Use
  Company Number: US-MERCK-0807USA02952M

PATIENT
  Sex: Female

DRUGS (3)
  1. SINGULAIR [Suspect]
     Route: 048
     Dates: start: 20010601
  2. ZYRTEC [Concomitant]
     Route: 065
     Dates: start: 20010601
  3. VITAMINS (UNSPECIFIED) [Concomitant]
     Route: 065

REACTIONS (4)
  - ADVERSE EVENT [None]
  - AMNIOCENTESIS ABNORMAL [None]
  - DRUG EXPOSURE DURING PREGNANCY [None]
  - PREMATURE BABY [None]
